FAERS Safety Report 24073136 (Version 2)
Quarter: 2025Q2

REPORT INFORMATION
  Report Type: Other
  Country: CN (occurrence: CN)
  Receive Date: 20240710
  Receipt Date: 20250516
  Transmission Date: 20250717
  Serious: Yes (Other)
  Sender: TETRAPHASE PHARMACEUTICALS, INC.
  Company Number: CN-TETRAPHASE PHARMACEUTICALS, INC-2024-INNO-CN000046

PATIENT

DRUGS (1)
  1. XERAVA [Suspect]
     Active Substance: ERAVACYCLINE DIHYDROCHLORIDE
     Indication: Abdominal infection
     Dosage: 75 MG, DAILY
     Route: 041
     Dates: start: 20240618, end: 20240624

REACTIONS (1)
  - Myelosuppression [Recovering/Resolving]

NARRATIVE: CASE EVENT DATE: 20240621
